FAERS Safety Report 7213296-8 (Version None)
Quarter: 2010Q4

REPORT INFORMATION
  Report Type: 
  Country: None (occurrence: None)
  Receive Date: 20101126
  Receipt Date: 20091019
  Transmission Date: 20110411
  Serious: Yes (Other)
  Sender: FDA-Public Use
  Company Number: WAES 0706USA00839

PATIENT
  Age: 60 Year
  Sex: Female
  Weight: 85.2762 kg

DRUGS (4)
  1. FOSAMAX [Suspect]
     Indication: OSTEOPENIA
     Dosage: 70 MG/WKY/PO
     Route: 048
     Dates: start: 20040726, end: 20060828
  2. CALCIUM [Concomitant]
  3. LETROZOLE [Concomitant]
  4. SULFASALAZINE [Concomitant]

REACTIONS (14)
  - COLITIS [None]
  - DENTAL CARIES [None]
  - EAR INFECTION [None]
  - FATIGUE [None]
  - GINGIVAL INFECTION [None]
  - GINGIVITIS [None]
  - MUSCULOSKELETAL PAIN [None]
  - ORAL DISORDER [None]
  - OSTEONECROSIS [None]
  - SUBMANDIBULAR MASS [None]
  - TOOTH ABSCESS [None]
  - TOOTH DISORDER [None]
  - TOOTH FRACTURE [None]
  - TOOTH LOSS [None]
